FAERS Safety Report 6931865-7 (Version None)
Quarter: 2010Q3

REPORT INFORMATION
  Report Type: 
  Country: None (occurrence: None)
  Receive Date: 20100819
  Receipt Date: 20100809
  Transmission Date: 20110219
  Serious: Yes (Other)
  Sender: FDA-Public Use
  Company Number: JP-PFIZER INC-2010099374

PATIENT
  Sex: Female

DRUGS (1)
  1. NAFARELIN ACETATE [Suspect]
     Indication: ENDOMETRIOSIS
     Dosage: UNK
     Dates: start: 20100628

REACTIONS (4)
  - BLOOD PRESSURE INCREASED [None]
  - HOT FLUSH [None]
  - HYPERHIDROSIS [None]
  - PALPITATIONS [None]
